FAERS Safety Report 8895862 (Version 1)
Quarter: 2012Q4

REPORT INFORMATION
  Report Type: 
  Country: US (occurrence: US)
  Receive Date: 20121108
  Receipt Date: 20121108
  Transmission Date: 20130627
  Serious: Yes (Hospitalization, Other)
  Sender: FDA-Public Use
  Company Number: US-PFIZER INC-2012276062

PATIENT
  Age: 47 Year
  Sex: Male

DRUGS (5)
  1. AZITHROMYCIN [Suspect]
     Indication: UPPER RESPIRATORY TRACT INFECTION
     Dosage: UNK
  2. METHADONE [Suspect]
     Dosage: 10 mg, 3x/day
  3. LISINOPRIL W/HYDROCHLOROTHIAZIDE [Concomitant]
     Dosage: 20/12.5 mg
  4. BENZONATATE [Concomitant]
     Dosage: 100 mg every 8 hours
  5. DEXTROMETHORPHAN HBR/DOXYLAMINE SUCCINATE/PARACETAMOL [Concomitant]

REACTIONS (2)
  - Cardiac arrest [Recovering/Resolving]
  - Electrocardiogram QT prolonged [Recovering/Resolving]
